FAERS Safety Report 7618307-3 (Version None)
Quarter: 2011Q3

REPORT INFORMATION
  Report Type: 
  Country: None (occurrence: None)
  Receive Date: 20110718
  Receipt Date: 20110708
  Transmission Date: 20111222
  Serious: Yes (Hospitalization)
  Sender: FDA-Public Use
  Company Number: IN-ROCHE-784642

PATIENT
  Sex: Female
  Weight: 66 kg

DRUGS (11)
  1. ALCOHOL [Concomitant]
     Dates: start: 20110518
  2. METHYL SAL. [Concomitant]
     Dates: start: 20110518
  3. TRAMADOL HYDROCHLORIDE AND ACETAMINOPHEN [Concomitant]
     Dates: start: 20110518
  4. CHLORZOXAZONE/DICLOFENIAC/PARACETAMOL [Concomitant]
     Dates: start: 20110518
  5. SHELCAL [Concomitant]
     Dates: start: 20110618
  6. CAPECITABINE [Suspect]
     Dosage: CYCLICAL,FILM-COATED TABLET
     Route: 048
     Dates: start: 20110702
  7. DICLOFENAC DIETHYLAMINE [Concomitant]
     Dates: start: 20110518
  8. AUTRIN [Concomitant]
     Dates: start: 20110618
  9. CAPECITABINE [Suspect]
     Indication: BREAST CANCER
     Dosage: CYCLICAL CAPECITABINE (CAPECITABINE) FILM-COATED TABLET
     Route: 048
     Dates: start: 20110427, end: 20110531
  10. LINSEED [Concomitant]
     Dosage: DRUG: LINSEED OIL
     Dates: start: 20110518
  11. MENTHOL [Concomitant]
     Dates: start: 20110518

REACTIONS (3)
  - ANAEMIA [None]
  - HYPOALBUMINAEMIA [None]
  - DIARRHOEA [None]
